FAERS Safety Report 7770557-1 (Version None)
Quarter: 2011Q3

REPORT INFORMATION
  Report Type: 
  Country: None (occurrence: None)
  Receive Date: 20110922
  Receipt Date: 20110408
  Transmission Date: 20111222
  Serious: No
  Sender: FDA-Public Use
  Company Number: US-ASTRAZENECA-2011SE20125

PATIENT
  Age: 53 Year
  Sex: Female
  Weight: 50.3 kg

DRUGS (5)
  1. ROPINIROLE [Concomitant]
     Indication: MUSCLE SPASMS
  2. CELEXA [Concomitant]
     Indication: DEPRESSION
  3. CELEXA [Concomitant]
     Indication: ANXIETY
  4. SEROQUEL XR [Suspect]
     Indication: BIPOLAR DISORDER
     Route: 048
  5. PLAVIX [Concomitant]
     Indication: CEREBROVASCULAR ACCIDENT

REACTIONS (2)
  - INSOMNIA [None]
  - DRUG DOSE OMISSION [None]
